FAERS Safety Report 17533414 (Version 2)
Quarter: 2020Q1

REPORT INFORMATION
  Report Type: Spontaneous
  Country: GB (occurrence: GB)
  Receive Date: 20200312
  Receipt Date: 20200325
  Transmission Date: 20200409
  Serious: Yes (Hospitalization)
  Sender: FDA-Public Use
  Company Number: GB-VERTEX PHARMACEUTICALS-2020-004807

PATIENT
  Sex: Female

DRUGS (2)
  1. SYMKEVI [Suspect]
     Active Substance: IVACAFTOR\TEZACAFTOR
     Indication: CYSTIC FIBROSIS
     Dosage: 100/150MG SYMKEVI AM
     Route: 048
     Dates: start: 20200116
  2. KALYDECO [Suspect]
     Active Substance: IVACAFTOR
     Indication: CYSTIC FIBROSIS
     Dosage: 150MG KALYDECO PM
     Route: 048
     Dates: start: 20200116

REACTIONS (3)
  - Headache [Unknown]
  - Viral infection [Unknown]
  - Productive cough [Unknown]

NARRATIVE: CASE EVENT DATE: 2020
